FAERS Safety Report 4763421-3 (Version None)
Quarter: 2005Q3

REPORT INFORMATION
  Report Type: 
  Country: None (occurrence: None)
  Receive Date: 20050908
  Receipt Date: 20050826
  Transmission Date: 20060218
  Serious: Yes (Hospitalization)
  Sender: FDA-Public Use
  Company Number: US-AMGEN-US148159

PATIENT
  Sex: Female

DRUGS (4)
  1. NEULASTA [Suspect]
     Indication: CHEMOTHERAPY
     Dates: start: 20050819
  2. CISPLATIN [Concomitant]
     Dates: start: 20050815, end: 20050818
  3. IFEX [Concomitant]
     Dates: start: 20050815, end: 20050818
  4. LASIX [Concomitant]

REACTIONS (3)
  - CONFUSIONAL STATE [None]
  - FEBRILE NEUTROPENIA [None]
  - WHITE BLOOD CELL COUNT DECREASED [None]
